FAERS Safety Report 16209278 (Version 1)
Quarter: 2019Q2

REPORT INFORMATION
  Report Type: Report from Study
  Country: US (occurrence: US)
  Receive Date: 20190417
  Receipt Date: 20190417
  Transmission Date: 20190711
  Serious: Yes (Hospitalization)
  Sender: FDA-Public Use
  Company Number: US-GILEAD-2019-0402441

PATIENT
  Age: 16 Year
  Sex: Female

DRUGS (5)
  1. COLISTIMETHATE [COLISTIMETHATE SODIUM] [Concomitant]
  2. MVW COMPLETE FORMULATION D3000 [Concomitant]
  3. SODIUM CHLORIDE. [Concomitant]
     Active Substance: SODIUM CHLORIDE
  4. AZTREONAM LYSINE [Suspect]
     Active Substance: AZTREONAM LYSINE
     Indication: CYSTIC FIBROSIS
     Dosage: 75 MG, TID 28 DAYS ON AND 28 DAYS OFF
     Route: 055
     Dates: start: 20180525
  5. CEFTAZIDIME. [Concomitant]
     Active Substance: CEFTAZIDIME

REACTIONS (2)
  - Pulmonary function test abnormal [Recovered/Resolved]
  - Influenza [Recovered/Resolved]
